FAERS Safety Report 5551381-7 (Version None)
Quarter: 2007Q4

REPORT INFORMATION
  Report Type: 
  Country: None (occurrence: None)
  Receive Date: 20071212
  Receipt Date: 20071129
  Transmission Date: 20080405
  Serious: Yes (Hospitalization)
  Sender: FDA-Public Use
  Company Number: NL-AMGEN-US254967

PATIENT
  Sex: Female

DRUGS (10)
  1. ENBREL [Suspect]
     Indication: PSORIASIS
     Route: 065
     Dates: start: 20071109, end: 20071128
  2. THYRAX [Concomitant]
     Route: 065
  3. HYDRALAZINE [Concomitant]
     Route: 065
  4. DAIVONEX [Concomitant]
     Dosage: 50MCG OINTMENT: USED WHEN NEEDED
     Route: 065
  5. ALLOPURINOL [Concomitant]
     Route: 065
  6. RENAGEL [Concomitant]
     Route: 065
  7. CARVEDILOL [Concomitant]
     Route: 065
  8. ALFACALCIDOL [Concomitant]
     Route: 065
  9. FERROGRAD [Concomitant]
     Dosage: 105 MG
     Route: 065
  10. CARBASALATE CALCIUM [Concomitant]
     Route: 065

REACTIONS (1)
  - MYALGIA [None]
